FAERS Safety Report 6384115-7 (Version None)
Quarter: 2009Q4

REPORT INFORMATION
  Report Type: 
  Country: None (occurrence: None)
  Receive Date: 20091001
  Receipt Date: 20090922
  Transmission Date: 20100525
  Serious: Yes (Other)
  Sender: FDA-Public Use
  Company Number: US-AMGEN-QUU365831

PATIENT
  Sex: Female

DRUGS (7)
  1. ENBREL [Suspect]
     Indication: RHEUMATOID ARTHRITIS
  2. LIPITOR [Concomitant]
  3. ZOCOR [Concomitant]
  4. CALCIUM [Concomitant]
  5. BONIVA [Concomitant]
  6. KLONOPIN [Concomitant]
  7. LOVAZA [Concomitant]

REACTIONS (3)
  - AORTIC VALVE DISEASE [None]
  - ARTHROPATHY [None]
  - HISTOPLASMOSIS [None]
